FAERS Safety Report 4415249-1 (Version None)
Quarter: 2004Q3

REPORT INFORMATION
  Report Type: 
  Country: None (occurrence: None)
  Receive Date: 20040804
  Receipt Date: 20040329
  Transmission Date: 20050211
  Serious: Yes (Other)
  Sender: FDA-Public Use
  Company Number: PHEH2004US03618

PATIENT
  Age: 58 Year
  Sex: Male

DRUGS (5)
  1. ZOMETA [Suspect]
     Indication: METASTASES TO BONE
     Dosage: 4 MG EVERY MONTH
     Dates: start: 20011201, end: 20030101
  2. HYDROCORTISONE [Concomitant]
     Dosage: 30 MG, QD
     Route: 048
     Dates: start: 20001001, end: 20010501
  3. CYTOXAN [Concomitant]
     Indication: PROSTATE CANCER
     Dosage: 50 MG, BID
     Dates: start: 20020501, end: 20030101
  4. CARBOPLATIN [Concomitant]
     Indication: PROSTATE CANCER
     Dosage: 200 MG, UNK
     Dates: start: 20010901, end: 20020101
  5. TAXOTERE [Concomitant]
     Indication: PROSTATE CANCER
     Dosage: 50 MG, UNK
     Dates: start: 20010901, end: 20020101

REACTIONS (8)
  - ACTINOMYCOSIS [None]
  - ALVEOLOPLASTY [None]
  - BONE DEBRIDEMENT [None]
  - OSTEOMYELITIS [None]
  - OSTEONECROSIS [None]
  - SEQUESTRECTOMY [None]
  - SURGERY [None]
  - TOOTH EXTRACTION [None]
